FAERS Safety Report 4564209-9 (Version None)
Quarter: 2005Q1

REPORT INFORMATION
  Report Type: 
  Country: None (occurrence: None)
  Receive Date: 20050128
  Receipt Date: 20041222
  Transmission Date: 20050727
  Serious: Yes (Hospitalization)
  Sender: FDA-Public Use
  Company Number: FR-ROCHE-390108

PATIENT
  Age: 23 Year
  Sex: Female
  Weight: 48 kg

DRUGS (1)
  1. FANSIDAR [Suspect]
     Indication: TOXOPLASMOSIS
     Route: 048
     Dates: start: 20041008, end: 20041023

REACTIONS (2)
  - DRUG EXPOSURE DURING PREGNANCY [None]
  - PANCYTOPENIA [None]
